FAERS Safety Report 9343654 (Version 4)
Quarter: 2013Q3

REPORT INFORMATION
  Report Type: Spontaneous
  Country: DE (occurrence: None)
  Receive Date: 20130610
  Receipt Date: 20130806
  Transmission Date: 20140515
  Serious: Yes (Hospitalization)
  Sender: FDA-Public Use
  Company Number: 2013MPI00332

PATIENT
  Age: 23 Year
  Sex: Female

DRUGS (14)
  1. BRENTUXIMAB VEDOTIN (BRENTUXIMAB VEDOTIN) INJECTION [Suspect]
     Indication: HODGKIN^S DISEASE
     Dosage: 1.8 MG/KG, Q21D, INTRAVENOUS
     Route: 042
     Dates: start: 20130312, end: 20130514
  2. DOXORUBICIN (DOXORUBICIN) (DOXORUBICIN) [Suspect]
     Indication: HODGKIN^S DISEASE
     Dosage: 35 MG/M2, QCYCLE, INTRAVENOUS
     Route: 042
     Dates: start: 20130313, end: 20130515
  3. ETOPOSIDE (ETOPOSIDE) [Suspect]
     Indication: HODGKIN^S DISEASE
     Dosage: 200MG/M2, QCYCLE, INTRAVENOUS
     Route: 042
     Dates: start: 20130313, end: 20130515
  4. CYCLOPHOSPHAMIDE (CYCLOPHOSPHAMIDE) [Suspect]
     Indication: HODGKIN^S DISEASE
     Dosage: 1250 MG/M2, QCYCLE, INTRAVENOUS?
     Route: 042
     Dates: start: 20130313, end: 20130517
  5. PROCARBAZINE (PROCARBAZINE) [Suspect]
     Indication: HODGKIN^S DISEASE
     Dosage: 100 MG/M2, QCYCLE, INTRAVENOUS
     Route: 042
     Dates: start: 20130313, end: 20130521
  6. PREDNISONE (PREDNISONE) [Suspect]
     Indication: HODGKIN^S DISEASE
     Route: 048
     Dates: start: 20130313, end: 20130523
  7. PANTOPRAZOL (PANTOPRAZOLE SODIUM) [Concomitant]
  8. COTRIN FORTE EU RHO (SULFAMETHOXAZOLE, TRIMETHOPRIM) [Concomitant]
  9. ENOXAPARIN (ENOXAPARIN) [Concomitant]
  10. AMPHOTERICIN B (AMPHOETERICIN B) [Concomitant]
  11. MCP (METOCLOPRAMIDE) [Concomitant]
  12. CIPROFLOXACIN (CIPROFLOXACIN HYDROCHLORIDE) [Concomitant]
  13. CLEXANE (ENOXAPARIN SODIUM) [Concomitant]
  14. ZOLADEX (GOSERELIN ACETATE) [Concomitant]

REACTIONS (13)
  - Febrile neutropenia [None]
  - Haemoglobin decreased [None]
  - White blood cell count decreased [None]
  - Platelet count decreased [None]
  - Mucosal inflammation [None]
  - Enterocolitis [None]
  - Oesophagitis [None]
  - Diarrhoea [None]
  - Chest pain [None]
  - Proctalgia [None]
  - Leukopenia [None]
  - Clostridium test positive [None]
  - Rectal haemorrhage [None]
